FAERS Safety Report 5587786-8 (Version None)
Quarter: 2007Q4

REPORT INFORMATION
  Report Type: 
  Country: None (occurrence: None)
  Receive Date: 20071205
  Receipt Date: 20070622
  Transmission Date: 20080405
  Serious: Yes (Hospitalization)
  Sender: FDA-Public Use
  Company Number: E3810-01024-SPO-US

PATIENT
  Age: 70 Year
  Sex: Female
  Weight: 69 kg

DRUGS (4)
  1. ACIPHEX [Suspect]
     Indication: GASTROOESOPHAGEAL REFLUX DISEASE
     Dosage: 20 MG, ORAL ; 20 MG, ORAL
     Route: 048
     Dates: start: 20060101
  2. ACIPHEX [Suspect]
     Indication: GASTROOESOPHAGEAL REFLUX DISEASE
     Dosage: 20 MG, ORAL ; 20 MG, ORAL
     Route: 048
     Dates: start: 20060101
  3. IRON (IRON) [Concomitant]
  4. LIBRAX [Concomitant]

REACTIONS (2)
  - BURNING SENSATION [None]
  - GASTROINTESTINAL HAEMORRHAGE [None]
